FAERS Safety Report 5740549-2 (Version None)
Quarter: 2008Q2

REPORT INFORMATION
  Report Type: 
  Country: None (occurrence: None)
  Receive Date: 20080516
  Receipt Date: 20080515
  Transmission Date: 20081010
  Serious: Yes (Death, Other)
  Sender: FDA-Public Use
  Company Number: US-ASTRAZENECA-2007UW12870

PATIENT
  Sex: Male
  Weight: 84.1 kg

DRUGS (3)
  1. SEROQUEL [Suspect]
     Indication: SLEEP DISORDER
     Route: 048
     Dates: start: 20021201, end: 20060201
  2. RISPERDAL [Concomitant]
     Dates: end: 20050101
  3. ADDERALL 10 [Concomitant]

REACTIONS (3)
  - DEATH [None]
  - PANCREATITIS [None]
  - TYPE 1 DIABETES MELLITUS [None]
